FAERS Safety Report 23943205 (Version 2)
Quarter: 2024Q2

REPORT INFORMATION
  Report Type: Report from Study
  Country: AR (occurrence: AR)
  Receive Date: 20240605
  Receipt Date: 20240624
  Transmission Date: 20240716
  Serious: Yes (Hospitalization)
  Sender: FDA-Public Use
  Company Number: AR-BoehringerIngelheim-2024-BI-031616

PATIENT
  Age: 67 Year
  Sex: Female
  Weight: 60 kg

DRUGS (1)
  1. OFEV [Suspect]
     Active Substance: NINTEDANIB
     Indication: Idiopathic pulmonary fibrosis
     Route: 048
     Dates: start: 20200916

REACTIONS (3)
  - Respiratory disorder [Recovered/Resolved]
  - Constipation [Recovered/Resolved]
  - Tachycardia [Recovered/Resolved]
